FAERS Safety Report 8398117-2 (Version None)
Quarter: 2012Q2

REPORT INFORMATION
  Report Type: 
  Country: None (occurrence: None)
  Receive Date: 20120531
  Receipt Date: 20110412
  Transmission Date: 20120825
  Serious: No
  Sender: FDA-Public Use
  Company Number: US-NOVEN-11US002292

PATIENT
  Sex: Male
  Weight: 22.676 kg

DRUGS (2)
  1. NONE [Concomitant]
  2. DAYTRANA [Suspect]
     Indication: ATTENTION DEFICIT/HYPERACTIVITY DISORDER
     Dosage: 15 MG, UNK
     Route: 062
     Dates: start: 20110101, end: 20110301

REACTIONS (3)
  - APPLICATION SITE OEDEMA [None]
  - APPLICATION SITE IRRITATION [None]
  - APPLICATION SITE ERYTHEMA [None]
